FAERS Safety Report 14132971 (Version 2)
Quarter: 2017Q4

REPORT INFORMATION
  Report Type: Report from Study
  Country: US (occurrence: US)
  Receive Date: 20171027
  Receipt Date: 20171115
  Transmission Date: 20180321
  Serious: Yes (Other)
  Sender: FDA-Public Use
  Company Number: US-AMGEN-USASL2017161744

PATIENT
  Age: 60 Year
  Sex: Male

DRUGS (2)
  1. PREDNISONE. [Suspect]
     Active Substance: PREDNISONE
     Indication: PRODUCT USED FOR UNKNOWN INDICATION
     Dosage: UNK
     Route: 065
  2. ENBREL [Suspect]
     Active Substance: ETANERCEPT
     Indication: RHEUMATOID ARTHRITIS
     Dosage: UNK, QWK
     Route: 065

REACTIONS (8)
  - Skin cancer [Unknown]
  - Adverse drug reaction [Unknown]
  - Skin atrophy [Unknown]
  - Insomnia [Unknown]
  - Injection site vesicles [Unknown]
  - Drug effect incomplete [Unknown]
  - Blood blister [Unknown]
  - Arthralgia [Unknown]

NARRATIVE: CASE EVENT DATE: 201709
